FAERS Safety Report 14482502 (Version 1)
Quarter: 2018Q1

REPORT INFORMATION
  Report Type: Spontaneous
  Country: US (occurrence: US)
  Receive Date: 20180202
  Receipt Date: 20180202
  Transmission Date: 20180509
  Serious: Yes (Hospitalization, Other)
  Sender: FDA-Public Use
  Company Number: US-ZYDUS-018957

PATIENT
  Age: 43 Year
  Sex: Female

DRUGS (3)
  1. PREDNISONE. [Suspect]
     Active Substance: PREDNISONE
     Indication: RHEUMATOID ARTHRITIS
     Route: 065
  2. PREDNISONE. [Concomitant]
     Active Substance: PREDNISONE
     Indication: RHEUMATOID ARTHRITIS
     Route: 065
  3. WARFARIN [Suspect]
     Active Substance: WARFARIN
     Indication: ANTICOAGULANT THERAPY
     Route: 065

REACTIONS (10)
  - Calciphylaxis [Recovering/Resolving]
  - Pyrexia [Unknown]
  - Fat necrosis [Recovering/Resolving]
  - Sepsis syndrome [Unknown]
  - Rash erythematous [Recovering/Resolving]
  - Necrosis [Recovering/Resolving]
  - Pain in extremity [Recovering/Resolving]
  - Skin ulcer [Recovering/Resolving]
  - Hypotension [Unknown]
  - Lymphocytic infiltration [Recovering/Resolving]
